FAERS Safety Report 8316955-9 (Version None)
Quarter: 2012Q2

REPORT INFORMATION
  Report Type: 
  Country: None (occurrence: None)
  Receive Date: 20120427
  Receipt Date: 20120420
  Transmission Date: 20120825
  Serious: Yes (Other)
  Sender: FDA-Public Use
  Company Number: US-PFIZER INC-2012084158

PATIENT
  Sex: Female
  Weight: 68 kg

DRUGS (9)
  1. TRICOR [Concomitant]
     Indication: BLOOD TRIGLYCERIDES INCREASED
     Dosage: UNK
  2. SUTENT [Suspect]
     Dosage: 50 MG, UNK
     Dates: start: 20110409
  3. BENAZEPRIL [Concomitant]
     Indication: BLOOD PRESSURE
     Dosage: UNK
  4. SUTENT [Suspect]
     Dosage: 25 MG, UNK
     Dates: start: 20120401, end: 20120408
  5. SYNTHROID [Concomitant]
     Dosage: UNK
  6. SUTENT [Suspect]
     Dosage: 50 MG, UNK
     Dates: start: 20110716, end: 20110101
  7. SUTENT [Suspect]
     Indication: METASTATIC RENAL CELL CARCINOMA
     Dosage: 25 MG, UNK
     Dates: start: 20110708, end: 20110715
  8. LIPITOR [Concomitant]
     Indication: BLOOD CHOLESTEROL INCREASED
     Dosage: UNK
  9. IMODIUM [Concomitant]
     Dosage: UNK

REACTIONS (10)
  - HEPATITIS [None]
  - YELLOW SKIN [None]
  - HEPATIC ENZYME INCREASED [None]
  - THYROID DISORDER [None]
  - PHOTOSENSITIVITY REACTION [None]
  - HYPERTENSION [None]
  - HAIR COLOUR CHANGES [None]
  - DIARRHOEA [None]
  - SKIN DISORDER [None]
  - NAUSEA [None]
